FAERS Safety Report 17866066 (Version 1)
Quarter: 2020Q2

REPORT INFORMATION
  Report Type: Report from Study
  Country: IT (occurrence: IT)
  Receive Date: 20200605
  Receipt Date: 20200605
  Transmission Date: 20200714
  Serious: Yes (Hospitalization)
  Sender: FDA-Public Use
  Company Number: IT-PFIZER INC-2020220797

PATIENT
  Age: 83 Year
  Sex: Female

DRUGS (12)
  1. OMEPRAZOLE. [Concomitant]
     Active Substance: OMEPRAZOLE
     Route: 048
  2. MEDROL [Suspect]
     Active Substance: METHYLPREDNISOLONE
     Indication: SERONEGATIVE ARTHRITIS
     Dosage: 16 MG
     Route: 048
     Dates: start: 20200101, end: 20200229
  3. MYLICON INFANTS GAS RELIEF ORIGINAL [Concomitant]
     Active Substance: DIMETHICONE
     Route: 048
  4. CITALOPRAM [Concomitant]
     Active Substance: CITALOPRAM HYDROBROMIDE
     Route: 048
  5. VOLTAREN [Interacting]
     Active Substance: DICLOFENAC SODIUM
     Indication: SERONEGATIVE ARTHRITIS
     Dosage: 1 DF, AS NEEDED
     Route: 048
     Dates: start: 20200101, end: 20200229
  6. SIMVASTATIN. [Concomitant]
     Active Substance: SIMVASTATIN
     Route: 048
  7. FOLINA [CALCIUM FOLINATE] [Concomitant]
     Active Substance: LEUCOVORIN CALCIUM
     Route: 048
  8. DELECIT [Concomitant]
     Active Substance: CHOLINE ALFOSCERATE
     Route: 048
  9. MIRTAZAPINE. [Concomitant]
     Active Substance: MIRTAZAPINE
     Route: 048
  10. COUMADIN [Interacting]
     Active Substance: WARFARIN SODIUM
     Indication: ATRIAL FIBRILLATION
     Dosage: 5 MG, AS NEEDED
     Route: 048
     Dates: start: 20200101, end: 20200229
  11. TRIPLIAM [Concomitant]
     Active Substance: AMLODIPINE\INDAPAMIDE\PERINDOPRIL
     Route: 048
  12. BISOPROLOL FUMARATE. [Concomitant]
     Active Substance: BISOPROLOL FUMARATE
     Route: 048

REACTIONS (2)
  - Drug interaction [Unknown]
  - International normalised ratio increased [Unknown]

NARRATIVE: CASE EVENT DATE: 20200229
